FAERS Safety Report 7734695-1 (Version None)
Quarter: 2011Q3

REPORT INFORMATION
  Report Type: 
  Country: None (occurrence: None)
  Receive Date: 20110907
  Receipt Date: 20110826
  Transmission Date: 20111222
  Serious: Yes (Hospitalization, Other)
  Sender: FDA-Public Use
  Company Number: US-ELI_LILLY_AND_COMPANY-US201108008825

PATIENT
  Age: 75 Year
  Sex: Female

DRUGS (2)
  1. CYMBALTA [Suspect]
     Dosage: UNK
  2. CYMBALTA [Suspect]
     Dosage: 60 MG, QD

REACTIONS (3)
  - RESPIRATORY FAILURE [None]
  - GASTROSTOMY TUBE INSERTION [None]
  - WRONG TECHNIQUE IN DRUG USAGE PROCESS [None]
